FAERS Safety Report 20741007 (Version 1)
Quarter: 2022Q2

REPORT INFORMATION
  Report Type: Spontaneous
  Country: US (occurrence: US)
  Receive Date: 20220422
  Receipt Date: 20220422
  Transmission Date: 20220721
  Serious: No
  Sender: FDA-Public Use
  Company Number: US-JNJFOC-20220424886

PATIENT
  Age: 39 Year
  Sex: Female

DRUGS (1)
  1. MENS ROGAINE EXTRA STRENGTH [Suspect]
     Active Substance: MINOXIDIL
     Indication: Alopecia
     Dosage: REQUIRED 1/2 CAPFUL
     Route: 061
     Dates: start: 20220104

REACTIONS (4)
  - Hair growth abnormal [Not Recovered/Not Resolved]
  - Product use issue [Unknown]
  - Off label use [Unknown]
  - Overdose [Unknown]

NARRATIVE: CASE EVENT DATE: 20220101
